FAERS Safety Report 15221591 (Version 1)
Quarter: 2018Q3

REPORT INFORMATION
  Report Type: Other
  Country: FR (occurrence: FR)
  Receive Date: 20180731
  Receipt Date: 20180731
  Transmission Date: 20181010
  Serious: Yes (Hospitalization, Other)
  Sender: FDA-Public Use
  Company Number: FR-APOTEX-2018AP018000

PATIENT
  Age: 61 Year
  Sex: Male

DRUGS (4)
  1. KARDEGIC [Interacting]
     Active Substance: ASPIRIN DL-LYSINE
     Indication: ISCHAEMIC STROKE
     Dosage: 1 DF, QD
     Route: 048
     Dates: start: 20180608, end: 20180625
  2. ASPEGIC [Concomitant]
     Active Substance: ASPIRIN DL-LYSINE
     Indication: ISCHAEMIC STROKE
     Dosage: IN TOTAL
     Route: 042
     Dates: start: 20180605, end: 20180605
  3. LOVENOX [Interacting]
     Active Substance: ENOXAPARIN SODIUM
     Indication: ISCHAEMIC STROKE
     Dosage: 1 DF, QD
     Route: 058
     Dates: start: 20180605, end: 20180625
  4. DEROXAT [Suspect]
     Active Substance: PAROXETINE HYDROCHLORIDE
     Dosage: 1 DF, QD
     Route: 048
     Dates: start: 20180608, end: 20180625

REACTIONS (2)
  - Drug interaction [Unknown]
  - Duodenal ulcer haemorrhage [Recovering/Resolving]

NARRATIVE: CASE EVENT DATE: 201806
